FAERS Safety Report 9663098 (Version 2)
Quarter: 2013Q4

REPORT INFORMATION
  Report Type: Report from Study
  Country: FR (occurrence: FR)
  Receive Date: 20131101
  Receipt Date: 20131112
  Transmission Date: 20140711
  Serious: Yes (Death)
  Sender: FDA-Public Use
  Company Number: FR-ROCHE-1297945

PATIENT
  Age: 58 Year
  Sex: Male

DRUGS (4)
  1. ZELBORAF [Suspect]
     Indication: MALIGNANT MELANOMA
     Route: 048
     Dates: start: 20130510, end: 20130705
  2. AMLODIPINE [Concomitant]
     Dosage: 10 MG
     Route: 048
  3. BETAHISTINE [Concomitant]
     Route: 048
  4. OMEPRAZOLE [Concomitant]

REACTIONS (1)
  - Disease progression [Fatal]
